FAERS Safety Report 10161291 (Version 1)
Quarter: 2014Q2

REPORT INFORMATION
  Report Type: Report from Study
  Country: CA (occurrence: CA)
  Receive Date: 20140508
  Receipt Date: 20140508
  Transmission Date: 20141212
  Serious: Yes (Hospitalization)
  Sender: FDA-Public Use
  Company Number: CA-ABBVIE-14P-028-1232625-00

PATIENT
  Sex: Male

DRUGS (1)
  1. HUMIRA [Suspect]
     Indication: CROHN^S DISEASE
     Route: 058
     Dates: start: 20121205

REACTIONS (5)
  - Abasia [Not Recovered/Not Resolved]
  - Fall [Recovered/Resolved]
  - Facial bones fracture [Not Recovered/Not Resolved]
  - Balance disorder [Unknown]
  - Head injury [Unknown]
